FAERS Safety Report 17012795 (Version 1)
Quarter: 2019Q4

REPORT INFORMATION
  Report Type: Spontaneous
  Country: CA (occurrence: CA)
  Receive Date: 20191109
  Receipt Date: 20191109
  Transmission Date: 20200122
  Serious: Yes (Hospitalization, Other)
  Sender: FDA-Public Use
  Company Number: CA-TEVA-2019-CA-1132768

PATIENT
  Sex: Female

DRUGS (8)
  1. ORENCIA [Suspect]
     Active Substance: ABATACEPT
     Indication: RHEUMATOID ARTHRITIS
     Route: 065
  2. TIAZAC [Suspect]
     Active Substance: DILTIAZEM HYDROCHLORIDE
     Indication: PRODUCT USED FOR UNKNOWN INDICATION
     Dosage: CAPSULE, EXTENDED RELEASE
     Route: 065
  3. PREDNISONE. [Suspect]
     Active Substance: PREDNISONE
     Indication: RHEUMATOID ARTHRITIS
     Route: 065
  4. SIMPONI [Suspect]
     Active Substance: GOLIMUMAB
     Indication: RHEUMATOID ARTHRITIS
     Dosage: SOLUTION SUBCUTANEOUS
     Route: 058
  5. CORTISONE ACETATE. [Suspect]
     Active Substance: CORTISONE ACETATE
     Indication: RHEUMATOID ARTHRITIS
     Route: 065
  6. RITUXAN [Suspect]
     Active Substance: RITUXIMAB
     Indication: RHEUMATOID ARTHRITIS
     Dosage: SOLUTION INTRAVENOUS
     Route: 042
  7. NAPROXEN SODIUM. [Suspect]
     Active Substance: NAPROXEN SODIUM
     Indication: RHEUMATOID ARTHRITIS
     Route: 065
  8. CIMZIA [Suspect]
     Active Substance: CERTOLIZUMAB PEGOL
     Indication: RHEUMATOID ARTHRITIS
     Dosage: SOLUTION SUBCUTANEOUS
     Route: 058

REACTIONS (10)
  - Paraesthesia [Recovering/Resolving]
  - Hypersensitivity [Recovering/Resolving]
  - Hypoaesthesia [Recovering/Resolving]
  - Pulmonary congestion [Recovering/Resolving]
  - Pain in extremity [Recovering/Resolving]
  - Drug ineffective [Recovering/Resolving]
  - Nephrolithiasis [Recovering/Resolving]
  - Nerve injury [Recovering/Resolving]
  - Infection [Recovering/Resolving]
  - Atrial fibrillation [Recovering/Resolving]
